FAERS Safety Report 4455249-9 (Version None)
Quarter: 2004Q3

REPORT INFORMATION
  Report Type: 
  Country: None (occurrence: None)
  Receive Date: 20040921
  Receipt Date: 20030407
  Transmission Date: 20050211
  Serious: Yes (Hospitalization, Other)
  Sender: FDA-Public Use
  Company Number: US-MERCK-0304USA00833

PATIENT
  Age: 41 Year
  Sex: Female
  Weight: 52 kg

DRUGS (11)
  1. ZITHROMAX [Concomitant]
     Indication: INFECTION
     Route: 065
     Dates: start: 20001116, end: 20001122
  2. CARDIZEM [Concomitant]
     Indication: CHEST DISCOMFORT
     Route: 065
     Dates: start: 19991221
  3. ISMO [Concomitant]
     Indication: CHEST DISCOMFORT
     Route: 065
     Dates: start: 19991221
  4. MORPHINE SULFATE [Concomitant]
     Route: 048
     Dates: start: 20001117
  5. MS CONTIN [Concomitant]
     Route: 048
  6. MS CONTIN [Concomitant]
     Route: 065
  7. MS CONTIN [Concomitant]
     Route: 065
  8. VIOXX [Suspect]
     Indication: BACK DISORDER
     Route: 048
     Dates: start: 20001116, end: 20001122
  9. VIOXX [Suspect]
     Route: 048
     Dates: start: 20001123, end: 20001201
  10. VIOXX [Suspect]
     Indication: ARTHROPATHY
     Route: 048
     Dates: start: 20001116, end: 20001122
  11. VIOXX [Suspect]
     Route: 048
     Dates: start: 20001123, end: 20001201

REACTIONS (14)
  - ANGIONEUROTIC OEDEMA [None]
  - CELLULITIS [None]
  - CHEST PAIN [None]
  - DEPRESSION [None]
  - GASTROINTESTINAL INJURY [None]
  - GOUT [None]
  - INSOMNIA [None]
  - INTERVERTEBRAL DISC DISORDER [None]
  - JOINT INJURY [None]
  - OEDEMA PERIPHERAL [None]
  - PALPITATIONS [None]
  - PNEUMONIA [None]
  - SKIN DISCOLOURATION [None]
  - SYNOVITIS [None]
